FAERS Safety Report 5245544-8 (Version None)
Quarter: 2007Q1

REPORT INFORMATION
  Report Type: 
  Country: None (occurrence: None)
  Receive Date: 20070223
  Receipt Date: 20070213
  Transmission Date: 20070707
  Serious: Yes (Disabling)
  Sender: FDA-Public Use
  Company Number: DE-PFIZER INC-2007006376

PATIENT
  Sex: Male
  Weight: 70 kg

DRUGS (2)
  1. ATORVASTATIN CALCIUM [Suspect]
     Dosage: DAILY DOSE:10MG
     Route: 048
     Dates: start: 20040101, end: 20070122
  2. ASPIRIN [Concomitant]

REACTIONS (1)
  - MUSCLE RUPTURE [None]
